FAERS Safety Report 4888695-X (Version None)
Quarter: 2005Q4

REPORT INFORMATION
  Report Type: 
  Country: None (occurrence: None)
  Receive Date: 20051215
  Receipt Date: 20050518
  Transmission Date: 20060501
  Serious: Yes (Hospitalization)
  Sender: FDA-Public Use
  Company Number: 2005078862

PATIENT
  Age: 56 Year
  Sex: Male

DRUGS (3)
  1. BEXTRA [Suspect]
     Indication: POSTOPERATIVE ANALGESIA
     Dosage: 20 MG (20 MG, 1 IN 1 D), ORAL
     Route: 048
     Dates: start: 20050129, end: 20050202
  2. OXYCODONE HYDROCHLORIDE W/PARACETAMOL HYDROCHLORIDE, PARACETAMOL) [Concomitant]
  3. PROMETHAZINE [Concomitant]

REACTIONS (4)
  - BLOOD PRESSURE INCREASED [None]
  - CORONARY ARTERY THROMBOSIS [None]
  - PULMONARY EMBOLISM [None]
  - THROMBOSIS [None]
